FAERS Safety Report 10774680 (Version 1)
Quarter: 2015Q1

REPORT INFORMATION
  Report Type: Spontaneous
  Country: US (occurrence: None)
  Receive Date: 20150206
  Receipt Date: 20150206
  Transmission Date: 20150721
  Serious: No
  Sender: FDA-Public Use
  Company Number: HYP201309-000058

PATIENT
  Age: 23 Year
  Sex: Female

DRUGS (5)
  1. L-ARGININE [Concomitant]
     Active Substance: ARGININE
  2. MULTIVITAMIN [Concomitant]
     Active Substance: VITAMINS
  3. VITAMIN A [Concomitant]
     Active Substance: VITAMIN A
  4. RAVICTI [Suspect]
     Active Substance: GLYCEROL PHENYLBUTYRATE
     Indication: UREA CYCLE ENZYME DEFICIENCY
     Route: 048
     Dates: start: 20130813, end: 20130913
  5. VITAMIN B [Concomitant]
     Active Substance: VITAMIN B

REACTIONS (5)
  - Coordination abnormal [None]
  - Dysarthria [None]
  - Asthenia [None]
  - Drug ineffective [None]
  - Eye disorder [None]

NARRATIVE: CASE EVENT DATE: 20130910
